FAERS Safety Report 24362348 (Version 1)
Quarter: 2024Q3

REPORT INFORMATION
  Report Type: Spontaneous
  Country: ET (occurrence: ET)
  Receive Date: 20240925
  Receipt Date: 20240925
  Transmission Date: 20241017
  Serious: Yes (Other)
  Sender: GLAND PHARMA
  Company Number: ET-GLANDPHARMA-ET-2024GLNLIT00795

PATIENT
  Age: 50 Year
  Sex: Male

DRUGS (2)
  1. GEMCITABINE [Suspect]
     Active Substance: GEMCITABINE
     Indication: Cholangiocarcinoma
     Dosage: ON DAY 8 OF 21-DAY CYCLE
     Route: 065
  2. CISPLATIN [Suspect]
     Active Substance: CISPLATIN
     Indication: Cholangiocarcinoma
     Dosage: ON DAY 1 AND 8 OF A 21-DAY CYCLE
     Route: 065

REACTIONS (3)
  - Peripheral artery thrombosis [Recovered/Resolved]
  - Peripheral ischaemia [Recovered/Resolved]
  - Product use in unapproved indication [Unknown]
